FAERS Safety Report 6095727-2 (Version None)
Quarter: 2009Q1

REPORT INFORMATION
  Report Type: 
  Country: None (occurrence: None)
  Receive Date: 20090227
  Receipt Date: 20080604
  Transmission Date: 20090719
  Serious: Yes (Hospitalization)
  Sender: FDA-Public Use
  Company Number: A0731150A

PATIENT
  Age: 54 Year
  Sex: Female

DRUGS (5)
  1. LAMICTAL [Suspect]
     Dosage: 200MG TWICE PER DAY
     Route: 048
     Dates: start: 20080101
  2. CYMBALTA [Suspect]
     Indication: DEPRESSION
     Dosage: 60MG TWICE PER DAY
     Dates: start: 20080101
  3. SYNTHROID [Concomitant]
  4. KLONOPIN [Concomitant]
  5. AMBIEN [Concomitant]

REACTIONS (5)
  - DEPRESSION [None]
  - INTENTIONAL SELF-INJURY [None]
  - SUICIDAL IDEATION [None]
  - SUICIDE ATTEMPT [None]
  - THINKING ABNORMAL [None]
